FAERS Safety Report 8609032-0 (Version None)
Quarter: 2012Q3

REPORT INFORMATION
  Report Type: 
  Country: None (occurrence: None)
  Receive Date: 20120821
  Receipt Date: 20120817
  Transmission Date: 20120928
  Serious: Yes (Hospitalization, Other)
  Sender: FDA-Public Use
  Company Number: NO-GLAXOSMITHKLINE-B0824134A

PATIENT
  Sex: Male
  Weight: 85 kg

DRUGS (16)
  1. LAMICTAL [Concomitant]
  2. ABILIFY [Concomitant]
  3. LAMISIL [Concomitant]
  4. ZITHROMAX [Concomitant]
  5. VIBRAMYCIN [Concomitant]
  6. BRONKYL [Concomitant]
  7. DOXYLIN [Concomitant]
  8. VALPROATE SODIUM [Concomitant]
  9. PAROXETINE HCL [Suspect]
     Indication: SOCIAL PHOBIA
     Route: 048
     Dates: start: 19941124
  10. COSYLAN [Concomitant]
  11. BRONKYL [Concomitant]
  12. BREXIDOL [Concomitant]
  13. FLUOXETINE HCL [Concomitant]
  14. CITALOPRAM HYDROBROMIDE [Concomitant]
  15. CITALOPRAM HYDROBROMIDE [Concomitant]
  16. RINEXIN [Concomitant]

REACTIONS (6)
  - SELF INJURIOUS BEHAVIOUR [None]
  - SUICIDAL IDEATION [None]
  - ANGER [None]
  - DEPRESSION [None]
  - SUICIDAL BEHAVIOUR [None]
  - AMNESIA [None]
